FAERS Safety Report 6422996-9 (Version None)
Quarter: 2009Q4

REPORT INFORMATION
  Report Type: 
  Country: None (occurrence: None)
  Receive Date: 20091102
  Receipt Date: 20091020
  Transmission Date: 20100525
  Serious: Yes (Other)
  Sender: FDA-Public Use
  Company Number: US-BAYER-200916826NA

PATIENT
  Age: 54 Year
  Sex: Female

DRUGS (2)
  1. MAGNEVIST [Suspect]
     Indication: NUCLEAR MAGNETIC RESONANCE IMAGING BRAIN
     Dates: start: 20030911, end: 20030911
  2. MAGNEVIST [Suspect]
     Dosage: TOTAL DAILY DOSE: 13 ML
     Dates: start: 20061030, end: 20061030

REACTIONS (5)
  - EMOTIONAL DISTRESS [None]
  - FIBROSIS [None]
  - MOBILITY DECREASED [None]
  - NEPHROGENIC SYSTEMIC FIBROSIS [None]
  - PAIN [None]
